FAERS Safety Report 6030659-7 (Version None)
Quarter: 2009Q1

REPORT INFORMATION
  Report Type: 
  Country: None (occurrence: None)
  Receive Date: 20090107
  Receipt Date: 20081217
  Transmission Date: 20090719
  Serious: No
  Sender: FDA-Public Use
  Company Number: US-B.I. PHARMACEUTICALS,INC./RIDGEFIELD-2008-BP-18965BP

PATIENT
  Sex: Male

DRUGS (6)
  1. ATROVENT HFA [Suspect]
     Indication: CHRONIC OBSTRUCTIVE PULMONARY DISEASE
     Dosage: 102MCG
     Route: 055
     Dates: start: 20070501, end: 20081201
  2. ATROVENT HFA [Suspect]
     Indication: EMPHYSEMA
  3. ATENOLOL [Concomitant]
     Indication: HYPERTENSION
     Dosage: 50MG
  4. AVODART [Concomitant]
     Indication: BENIGN PROSTATIC HYPERPLASIA
  5. UROXATRAL [Concomitant]
     Indication: BENIGN PROSTATIC HYPERPLASIA
  6. IBUPROFEN TABLETS [Concomitant]
     Indication: PAIN
     Dosage: 600MG

REACTIONS (3)
  - BENIGN PROSTATIC HYPERPLASIA [None]
  - BLOOD PRESSURE FLUCTUATION [None]
  - RHINORRHOEA [None]
